FAERS Safety Report 9458892 (Version 1)
Quarter: 2013Q3

REPORT INFORMATION
  Report Type: Spontaneous
  Country: US (occurrence: US)
  Receive Date: 20130814
  Receipt Date: 20130814
  Transmission Date: 20140515
  Serious: Yes (Other)
  Sender: FDA-Public Use
  Company Number: US-BAYER-2013-098038

PATIENT
  Sex: Female

DRUGS (1)
  1. CLIMARA [Suspect]
     Indication: HORMONE LEVEL ABNORMAL
     Dosage: UNK
     Route: 062
     Dates: start: 2011

REACTIONS (3)
  - Incorrect drug administration duration [None]
  - Product adhesion issue [None]
  - Oophorectomy bilateral [None]
